FAERS Safety Report 9931225 (Version 2)
Quarter: 2014Q1

REPORT INFORMATION
  Report Type: Report from Study
  Country: US (occurrence: US)
  Receive Date: 20140228
  Receipt Date: 20140331
  Transmission Date: 20141002
  Serious: Yes (Death)
  Sender: FDA-Public Use
  Company Number: US-ROCHE-1357557

PATIENT
  Age: 72 Year
  Sex: Male

DRUGS (6)
  1. XELODA [Suspect]
     Indication: OESOPHAGEAL CARCINOMA
     Dosage: 4 TABLETS TWICE A DAY
     Route: 065
     Dates: start: 201308, end: 20131220
  2. XELODA [Suspect]
     Dosage: 3 TABLETS TWICE A DAY
     Route: 065
  3. XELODA [Suspect]
     Route: 065
     Dates: start: 201308, end: 20131221
  4. FLOMAX (UNITED STATES) [Concomitant]
  5. CELEXA (UNITED STATES) [Concomitant]
  6. PRILOSEC [Concomitant]

REACTIONS (2)
  - Oesophageal carcinoma [Fatal]
  - Rhinorrhoea [Unknown]
